FAERS Safety Report 9666293 (Version 1)
Quarter: 2013Q4

REPORT INFORMATION
  Report Type: Spontaneous
  Country: US (occurrence: None)
  Receive Date: 20131101
  Receipt Date: 20131101
  Transmission Date: 20140711
  Serious: Yes (Other)
  Sender: FDA-Public Use
  Company Number: None

PATIENT
  Age: 57 Year
  Sex: Male

DRUGS (3)
  1. RIFAMPION [Suspect]
     Indication: PERITONEAL TUBERCULOSIS
     Dosage: 2 CAPSULES, ORAL
     Route: 048
     Dates: start: 20130614, end: 20131130
  2. ISONIAZID [Concomitant]
  3. PYRIDOXINE [Concomitant]

REACTIONS (1)
  - Thrombocytopenia [None]
